FAERS Safety Report 7146058-0 (Version None)
Quarter: 2010Q4

REPORT INFORMATION
  Report Type: 
  Country: None (occurrence: None)
  Receive Date: 20101208
  Receipt Date: 20101004
  Transmission Date: 20110411
  Serious: No
  Sender: FDA-Public Use
  Company Number: US-BAYER-201022180BCC

PATIENT
  Sex: Female

DRUGS (4)
  1. ALEVE (CAPLET) [Suspect]
     Indication: PAIN
     Dosage: 220 MG, ONCE
     Route: 048
     Dates: start: 20100927, end: 20100927
  2. ALEVE (CAPLET) [Suspect]
     Dosage: 440 MG, ONCE
     Route: 048
     Dates: start: 20100930, end: 20100930
  3. IBUPROFEN [Concomitant]
     Dosage: UNK UNK, IRR
  4. ASPIRIN [Concomitant]
     Dosage: UNK UNK, IRR

REACTIONS (1)
  - PAIN [None]
